FAERS Safety Report 22138231 (Version 1)
Quarter: 2023Q1

REPORT INFORMATION
  Report Type: Spontaneous
  Country: CN (occurrence: CN)
  Receive Date: 20230325
  Receipt Date: 20230325
  Transmission Date: 20230418
  Serious: Yes (Other)
  Sender: FDA-Public Use
  Company Number: None

PATIENT
  Age: 64 Year
  Sex: Male
  Weight: 67.7 kg

DRUGS (6)
  1. CYCLOPHOSPHAMIDE [Suspect]
     Active Substance: CYCLOPHOSPHAMIDE
     Indication: Chronic lymphocytic leukaemia
     Dosage: 400 MG ONCE BY PUMP, INTRA PUMP, DILUTED WITH 250 ML OF 0.9 % SODIUM CHLORIDE
     Route: 050
     Dates: start: 20230130, end: 20230130
  2. SODIUM CHLORIDE [Suspect]
     Active Substance: SODIUM CHLORIDE
     Indication: Medication dilution
     Dosage: 250 ML, USED TO DILUTE 400 MG OF CYCLOPHOSPHAMIDE ONCE BY PUMP
     Route: 065
     Dates: start: 20230130, end: 20230130
  3. SODIUM CHLORIDE [Suspect]
     Active Substance: SODIUM CHLORIDE
     Dosage: 500 ML, USED TO DILUTE 1 G OF OBINUTUZUMAB
     Route: 041
     Dates: start: 20230130, end: 20230130
  4. SODIUM CHLORIDE [Suspect]
     Active Substance: SODIUM CHLORIDE
     Dosage: 50 ML, USED TO DILUTE 2 MG OF VINCRISTINE SULFATE
     Route: 041
     Dates: start: 20230130, end: 20230130
  5. OBINUTUZUMAB [Suspect]
     Active Substance: OBINUTUZUMAB
     Indication: Chronic lymphocytic leukaemia
     Dosage: 1 G ONCE, DILUTED WITH 500 ML OF 0.9 % SODIUM CHLORIDE
     Route: 041
     Dates: start: 20230130, end: 20230130
  6. VINCRISTINE SULFATE [Suspect]
     Active Substance: VINCRISTINE SULFATE
     Indication: Chronic lymphocytic leukaemia
     Dosage: 2 MG, DILUTED WITH 50 ML OF 0.9 % SODIUM CHLORIDE
     Route: 041
     Dates: start: 20230130, end: 20230130

REACTIONS (1)
  - Granulocytopenia [Recovering/Resolving]

NARRATIVE: CASE EVENT DATE: 20230211
